FAERS Safety Report 8728365 (Version 2)
Quarter: 2016Q4

REPORT INFORMATION
  Report Type: Spontaneous
  Country: US (occurrence: US)
  Receive Date: 20120817
  Receipt Date: 20161123
  Transmission Date: 20170207
  Serious: Yes (Hospitalization, Other)
  Sender: FDA-Public Use
  Company Number: US-JNJFOC-20120804919

PATIENT
  Age: 38 Year
  Sex: Female

DRUGS (6)
  1. HUMIRA [Suspect]
     Active Substance: ADALIMUMAB
     Indication: POUCHITIS
     Dosage: 40 MG/0.8 ML PRE-FILLED SYRINGE
     Route: 042
     Dates: start: 200908
  2. REMICADE [Suspect]
     Active Substance: INFLIXIMAB
     Indication: COLITIS ULCERATIVE
     Route: 042
  3. HUMIRA [Suspect]
     Active Substance: ADALIMUMAB
     Indication: POUCHITIS
     Route: 042
     Dates: start: 20120606
  4. HUMIRA [Suspect]
     Active Substance: ADALIMUMAB
     Indication: COLITIS ULCERATIVE
     Dosage: 40 MG/0.8 ML PRE-FILLED SYRINGE
     Route: 042
     Dates: start: 200908
  5. 6-MP [Suspect]
     Active Substance: MERCAPTOPURINE
     Indication: PRODUCT USED FOR UNKNOWN INDICATION
     Dosage: 40 MG/0.8 ML PRE-FILLED SYRINGE
     Route: 065
  6. HUMIRA [Suspect]
     Active Substance: ADALIMUMAB
     Indication: COLITIS ULCERATIVE
     Route: 042
     Dates: start: 20120606

REACTIONS (6)
  - Product use issue [Unknown]
  - Intestinal operation [Unknown]
  - Pouchitis [Unknown]
  - Pelvic pouch procedure [Unknown]
  - Ileostomy [Unknown]
  - Treatment failure [Unknown]

NARRATIVE: CASE EVENT DATE: 20110611
